FAERS Safety Report 8968939 (Version 1)
Quarter: 2012Q4

REPORT INFORMATION
  Report Type: 
  Country: US (occurrence: US)
  Receive Date: 20121218
  Receipt Date: 20121218
  Transmission Date: 20130627
  Serious: No
  Sender: FDA-Public Use
  Company Number: US-BRISTOL-MYERS SQUIBB COMPANY-16686891

PATIENT
  Age: 32 Year
  Sex: Female

DRUGS (1)
  1. ABILIFY TABS 5 MG [Suspect]
     Indication: SCHIZOPHRENIA
     Dosage: Rx: 1905290
Taken at morning.one time usage
     Route: 048
     Dates: start: 20120510

REACTIONS (3)
  - Hallucination [Unknown]
  - Lethargy [Unknown]
  - Disturbance in attention [Unknown]
